FAERS Safety Report 14900145 (Version 1)
Quarter: 2018Q2

REPORT INFORMATION
  Report Type: Spontaneous
  Country: PL (occurrence: PL)
  Receive Date: 20180516
  Receipt Date: 20180516
  Transmission Date: 20180711
  Serious: Yes (Other)
  Sender: FDA-Public Use
  Company Number: PL-MERCK KGAA-2047894

PATIENT
  Age: 58 Year
  Sex: Female

DRUGS (3)
  1. SYSTEN CONTI(KLIOGEST) [Suspect]
     Active Substance: ESTRADIOL\NORETHINDRONE ACETATE
  2. NOVOTHYROX [Suspect]
     Active Substance: LEVOTHYROXINE SODIUM
     Indication: THYROID DISORDER
  3. EUTHYROX N 150 [Suspect]
     Active Substance: LEVOTHYROXINE SODIUM

REACTIONS (4)
  - Postmenopausal haemorrhage [None]
  - Malaise [None]
  - Mood swings [None]
  - Blood thyroid stimulating hormone increased [None]
